FAERS Safety Report 9453010 (Version 1)
Quarter: 2013Q3

REPORT INFORMATION
  Report Type: Spontaneous
  Country: US (occurrence: US)
  Receive Date: 20130812
  Receipt Date: 20130812
  Transmission Date: 20140515
  Serious: Yes (Death)
  Sender: FDA-Public Use
  Company Number: US-TEVA-425300USA

PATIENT
  Sex: Male

DRUGS (2)
  1. TREANDA [Suspect]
     Dates: start: 20130530
  2. THALIDOMIDE [Concomitant]

REACTIONS (1)
  - Death [Fatal]
